FAERS Safety Report 18997274 (Version 1)
Quarter: 2021Q1

REPORT INFORMATION
  Report Type: Spontaneous
  Country: IN (occurrence: IN)
  Receive Date: 20210311
  Receipt Date: 20210311
  Transmission Date: 20210420
  Serious: Yes (Hospitalization)
  Sender: FDA-Public Use
  Company Number: IN-AMGEN-INDSP2021033997

PATIENT
  Age: 37 Year
  Sex: Female

DRUGS (9)
  1. CINACALCET HCL [Suspect]
     Active Substance: CINACALCET HYDROCHLORIDE
     Indication: HYPERCALCAEMIA
     Dosage: 30 MILLIGRAM, BID
     Route: 065
  2. FOLATE [Concomitant]
     Active Substance: FOLATE SODIUM
     Dosage: UNK
  3. PROGESTERONE. [Concomitant]
     Active Substance: PROGESTERONE
     Dosage: UNK
  4. FENTANYL CITRATE. [Concomitant]
     Active Substance: FENTANYL CITRATE
     Dosage: 25 MICROGRAM
  5. OXYTOCIN. [Concomitant]
     Active Substance: OXYTOCIN
     Dosage: 25 INTERNATIONAL UNIT
  6. IRON [Concomitant]
     Active Substance: IRON
     Dosage: UNK
  7. BUPIVACAINE;GLUCOSE [Concomitant]
     Dosage: 7.5 MILLIGRAM
  8. DEXTROSE. [Concomitant]
     Active Substance: DEXTROSE
     Indication: PROPHYLAXIS
  9. OCTREOTIDE. [Concomitant]
     Active Substance: OCTREOTIDE
     Indication: HYPOGLYCAEMIA
     Dosage: UNK

REACTIONS (7)
  - Caesarean section [Unknown]
  - Maternal exposure during pregnancy [Unknown]
  - Hypertension [Unknown]
  - Blood parathyroid hormone increased [Unknown]
  - Failed induction of labour [Unknown]
  - Off label use [Unknown]
  - Blood calcium increased [Unknown]
